FAERS Safety Report 8533787-7 (Version None)
Quarter: 2012Q3

REPORT INFORMATION
  Report Type: 
  Country: None (occurrence: None)
  Receive Date: 20120724
  Receipt Date: 20120717
  Transmission Date: 20120928
  Serious: Yes (Other)
  Sender: FDA-Public Use
  Company Number: CA-ROCHE-1038833

PATIENT
  Sex: Female

DRUGS (6)
  1. XOLAIR [Suspect]
     Dates: start: 20120328
  2. SYMBICORT [Concomitant]
  3. APO-SALVENT [Concomitant]
  4. XOLAIR [Suspect]
     Dates: start: 20120104
  5. SINGULAIR [Concomitant]
  6. XOLAIR [Suspect]
     Indication: ASTHMA
     Route: 058
     Dates: start: 20110914

REACTIONS (14)
  - OEDEMA PERIPHERAL [None]
  - INJECTION SITE HAEMORRHAGE [None]
  - BITE [None]
  - LOWER RESPIRATORY TRACT INFECTION [None]
  - BRONCHITIS [None]
  - ROAD TRAFFIC ACCIDENT [None]
  - SPINAL COLUMN INJURY [None]
  - NASOPHARYNGITIS [None]
  - INJECTION SITE PAIN [None]
  - FALL [None]
  - PAIN [None]
  - DISCOMFORT [None]
  - PARAESTHESIA [None]
  - INJECTION SITE PARAESTHESIA [None]
